FAERS Safety Report 14547108 (Version 2)
Quarter: 2018Q1

REPORT INFORMATION
  Report Type: Spontaneous
  Country: US (occurrence: US)
  Receive Date: 20180219
  Receipt Date: 20180321
  Transmission Date: 20180509
  Serious: No
  Sender: FDA-Public Use
  Company Number: US-PFIZER INC-2018067812

PATIENT
  Sex: Female

DRUGS (8)
  1. METHOTREXATE SODIUM. [Suspect]
     Active Substance: METHOTREXATE SODIUM
     Indication: RHEUMATOID ARTHRITIS
     Dosage: UNK
     Dates: start: 2015, end: 2017
  2. HUMIRA [Suspect]
     Active Substance: ADALIMUMAB
     Indication: RHEUMATOID ARTHRITIS
     Dosage: UNK
     Dates: start: 201706, end: 201802
  3. HUMIRA [Suspect]
     Active Substance: ADALIMUMAB
     Indication: PSORIATIC ARTHROPATHY
  4. ETODOLAC. [Suspect]
     Active Substance: ETODOLAC
     Indication: RHEUMATOID ARTHRITIS
     Dosage: UNK
  5. ETODOLAC. [Suspect]
     Active Substance: ETODOLAC
     Indication: PSORIATIC ARTHROPATHY
  6. METHOTREXATE SODIUM. [Suspect]
     Active Substance: METHOTREXATE SODIUM
     Indication: PSORIATIC ARTHROPATHY
  7. MELOXICAM. [Suspect]
     Active Substance: MELOXICAM
     Indication: RHEUMATOID ARTHRITIS
     Dosage: UNK
  8. MELOXICAM. [Suspect]
     Active Substance: MELOXICAM
     Indication: PSORIATIC ARTHROPATHY

REACTIONS (1)
  - Drug ineffective [Unknown]
